FAERS Safety Report 4623182-5 (Version None)
Quarter: 2005Q1

REPORT INFORMATION
  Report Type: 
  Country: None (occurrence: None)
  Receive Date: 20050329
  Receipt Date: 20050321
  Transmission Date: 20050727
  Serious: Yes (Disabling, Other)
  Sender: FDA-Public Use
  Company Number: 2005046846

PATIENT
  Age: 61 Year
  Sex: Male
  Weight: 76.2043 kg

DRUGS (2)
  1. GLUCOTROL XL [Suspect]
     Indication: DIABETES MELLITUS
     Dosage: 10 MG (10 MG, 1 IN 1 D), ORAL
     Route: 048
     Dates: end: 20050313
  2. METFORMIN HCL [Concomitant]

REACTIONS (13)
  - ANTISOCIAL BEHAVIOUR [None]
  - ANXIETY [None]
  - BLOOD GLUCOSE FLUCTUATION [None]
  - COLON CANCER [None]
  - CORONARY ARTERY DISEASE [None]
  - DISTURBANCE IN SOCIAL BEHAVIOUR [None]
  - HYPERTENSION [None]
  - HYPOACUSIS [None]
  - INTERVERTEBRAL DISC DEGENERATION [None]
  - INTERVERTEBRAL DISC PROTRUSION [None]
  - OSTEOARTHRITIS [None]
  - PHARMACEUTICAL PRODUCT COMPLAINT [None]
  - STOOL ANALYSIS ABNORMAL [None]
